FAERS Safety Report 8078743-0 (Version None)
Quarter: 2012Q1

REPORT INFORMATION
  Report Type: 
  Country: None (occurrence: None)
  Receive Date: 20120124
  Receipt Date: 20120103
  Transmission Date: 20120608
  Serious: Yes (Life-Threatening, Other)
  Sender: FDA-Public Use
  Company Number: 20110901

PATIENT
  Age: 37 Year
  Sex: Male

DRUGS (1)
  1. ACETYLCYSTEINE [Suspect]
     Indication: POISONING
     Dosage: INTRAVENOUS
     Route: 042

REACTIONS (10)
  - OFF LABEL USE [None]
  - ATRIAL FIBRILLATION [None]
  - CARDIO-RESPIRATORY ARREST [None]
  - ELECTROLYTE IMBALANCE [None]
  - VENTRICULAR FIBRILLATION [None]
  - NODAL ARRHYTHMIA [None]
  - HEPATIC ENCEPHALOPATHY [None]
  - PNEUMONIA ASPIRATION [None]
  - PANCREATITIS [None]
  - HEPATITIS ALCOHOLIC [None]
